FAERS Safety Report 4801587-7 (Version None)
Quarter: 2005Q4

REPORT INFORMATION
  Report Type: 
  Country: None (occurrence: None)
  Receive Date: 20051012
  Receipt Date: 20050903
  Transmission Date: 20060501
  Serious: Yes (Other)
  Sender: FDA-Public Use
  Company Number: 2005135665

PATIENT
  Age: 50 Year
  Sex: Male

DRUGS (1)
  1. ZYVOX [Suspect]
     Indication: STAPHYLOCOCCAL INFECTION

REACTIONS (2)
  - CHOLESTASIS [None]
  - UNEVALUABLE EVENT [None]
